FAERS Safety Report 6801738-9 (Version None)
Quarter: 2010Q2

REPORT INFORMATION
  Report Type: 
  Country: None (occurrence: None)
  Receive Date: 20100629
  Receipt Date: 20100618
  Transmission Date: 20101027
  Serious: Yes (Hospitalization, Other)
  Sender: FDA-Public Use
  Company Number: US-ELI_LILLY_AND_COMPANY-US201006005197

PATIENT
  Sex: Female

DRUGS (15)
  1. BYETTA [Suspect]
     Indication: TYPE 2 DIABETES MELLITUS
     Dosage: 5 UG, 2/D
     Route: 058
     Dates: start: 20070101, end: 20090101
  2. BYETTA [Suspect]
     Dosage: 5 UG, 2/D
     Route: 058
     Dates: start: 20100501
  3. METFORMIN HCL [Concomitant]
     Indication: TYPE 2 DIABETES MELLITUS
     Dosage: 1000 MG, EACH MORNING
  4. METFORMIN HCL [Concomitant]
     Dosage: 1000 MG, EACH EVENING
  5. AMARYL [Concomitant]
     Indication: TYPE 2 DIABETES MELLITUS
     Dosage: 1 MG, DAILY (1/D)
  6. LANTUS [Concomitant]
     Indication: TYPE 2 DIABETES MELLITUS
     Dosage: UNK, EACH EVENING
     Route: 058
  7. CYMBALTA [Concomitant]
     Dosage: 60 MG, DAILY (1/D)
  8. SIMVASTATIN [Concomitant]
     Indication: BLOOD CHOLESTEROL INCREASED
     Dosage: 40 MG, DAILY (1/D)
  9. SYNTHROID [Concomitant]
     Dosage: 88 MG, DAILY (1/D)
  10. PRILOSEC [Concomitant]
     Indication: GASTROOESOPHAGEAL REFLUX DISEASE
     Dosage: 40 MG, DAILY (1/D)
  11. DILTIAZEM [Concomitant]
     Dosage: 180 MG, DAILY (1/D)
  12. ASPIRIN [Concomitant]
     Dosage: 81 MG, DAILY (1/D)
  13. EYE DROPS [Concomitant]
  14. VITAMIN B COMPLEX CAP [Concomitant]
     Indication: ANAEMIA
     Dosage: UNK, DAILY (1/D)
  15. IRON [Concomitant]
     Indication: ANAEMIA
     Dosage: UNK, DAILY (1/D)

REACTIONS (9)
  - AMNESIA [None]
  - ARTHROPATHY [None]
  - BLOOD SODIUM DECREASED [None]
  - CYSTITIS [None]
  - HYPOTENSION [None]
  - KIDNEY INFECTION [None]
  - MEDICAL DEVICE COMPLICATION [None]
  - OFF LABEL USE [None]
  - URINARY TRACT INFECTION [None]
